FAERS Safety Report 18416034 (Version 2)
Quarter: 2020Q4

REPORT INFORMATION
  Report Type: Spontaneous
  Country: FR (occurrence: FR)
  Receive Date: 20201022
  Receipt Date: 20201030
  Transmission Date: 20210114
  Serious: Yes (Other)
  Sender: FDA-Public Use
  Company Number: FR-BAYER-2020-223769

PATIENT
  Sex: Female

DRUGS (1)
  1. MIRENA [Suspect]
     Active Substance: LEVONORGESTREL
     Dosage: 20 ?G PER DAY,  CONTINUOUSLY
     Route: 015
     Dates: start: 201311

REACTIONS (3)
  - Device breakage [Not Recovered/Not Resolved]
  - Embedded device [None]
  - Device difficult to use [None]

NARRATIVE: CASE EVENT DATE: 2019
